FAERS Safety Report 5607312-4 (Version None)
Quarter: 2008Q1

REPORT INFORMATION
  Report Type: 
  Country: None (occurrence: None)
  Receive Date: 20080130
  Receipt Date: 20070125
  Transmission Date: 20080703
  Serious: Yes (Hospitalization)
  Sender: FDA-Public Use
  Company Number: KR-JNJFOC-20080106259

PATIENT
  Age: 7 Year
  Sex: Male

DRUGS (2)
  1. CHILDREN'S IBUPROFEN [Suspect]
     Indication: RHEUMATOID ARTHRITIS
     Dosage: 8-10 MG/KG 3 TIMES DAILY X 7 MONTHS
  2. ASPIRIN [Interacting]
     Indication: PROPHYLAXIS

REACTIONS (3)
  - CORONARY ARTERY THROMBOSIS [None]
  - DRUG INTERACTION [None]
  - MYOCARDIAL ISCHAEMIA [None]
